FAERS Safety Report 16226406 (Version 4)
Quarter: 2019Q3

REPORT INFORMATION
  Report Type: Report from Study
  Country: US (occurrence: US)
  Receive Date: 20190423
  Receipt Date: 20190704
  Transmission Date: 20191004
  Serious: No
  Sender: FDA-Public Use
  Company Number: PHEH2019US016651

PATIENT
  Sex: Male

DRUGS (1)
  1. ENTRESTO [Suspect]
     Active Substance: SACUBITRIL\VALSARTAN
     Indication: PRODUCT USED FOR UNKNOWN INDICATION
     Dosage: UNK UNK, QD
     Route: 048

REACTIONS (13)
  - Dry mouth [Unknown]
  - Chills [Unknown]
  - Agoraphobia [Unknown]
  - Oral pain [Unknown]
  - Oropharyngeal pain [Unknown]
  - Fatigue [Unknown]
  - Oral discomfort [Unknown]
  - Pain in extremity [Unknown]
  - Thirst [Unknown]
  - Stomatitis [Unknown]
  - Inappropriate schedule of product administration [Unknown]
  - Psychiatric symptom [Unknown]
  - Dizziness [Unknown]
